FAERS Safety Report 10379658 (Version 2)
Quarter: 2014Q3

REPORT INFORMATION
  Report Type: Other
  Country: None (occurrence: US)
  Receive Date: 20140812
  Receipt Date: 20140812
  Transmission Date: 20150326
  Serious: Yes (Hospitalization)
  Sender: FDA-Public Use
  Company Number: US-GSKPPD-2014GSK002428

PATIENT
  Age: 61 Year
  Sex: Female

DRUGS (1)
  1. AVANDIA [Suspect]
     Active Substance: ROSIGLITAZONE MALEATE
     Indication: DIABETES MELLITUS
     Dosage: QD
     Route: 048
     Dates: start: 20030320, end: 20031117

REACTIONS (4)
  - Myocardial infarction [Recovered/Resolved]
  - Angina unstable [Recovered/Resolved]
  - Cardiac disorder [None]
  - Coronary artery bypass [Recovered/Resolved]

NARRATIVE: CASE EVENT DATE: 20050424
